FAERS Safety Report 9879913 (Version 2)
Quarter: 2014Q1

REPORT INFORMATION
  Report Type: Report from Study
  Country: US (occurrence: US)
  Receive Date: 20140207
  Receipt Date: 20140307
  Transmission Date: 20141002
  Serious: Yes (Other)
  Sender: FDA-Public Use
  Company Number: US-ROCHE-1342892

PATIENT
  Age: 47 Year
  Sex: Female
  Weight: 75.3 kg

DRUGS (5)
  1. BEVACIZUMAB [Suspect]
     Indication: BREAST CANCER
     Dosage: THE LAST DOSE PRIOR TO SAE WAS ON 03/APR/2009
     Route: 042
     Dates: end: 20081016
  2. PEGFILGRASTIM [Suspect]
     Indication: BREAST CANCER
     Dosage: LAST DOSE ADMINISTERED ON 14/NOV/2009
     Route: 065
     Dates: start: 20081016
  3. PACLITAXEL [Suspect]
     Indication: BREAST CANCER
     Dosage: LAST DOSE ADMINISTERED ON 06/MAR/2009
     Route: 065
     Dates: start: 20081016
  4. DOXORUBICIN [Suspect]
     Indication: BREAST CANCER
     Dosage: LAST DOSE ADMINISTERED ON 28/NOV/2008
     Route: 065
     Dates: start: 20081016
  5. CYCLOPHOSPHAMID [Suspect]
     Indication: BREAST CANCER
     Dosage: LAST DOSE ADMINISTERED ON 28/NOV/2008
     Route: 065
     Dates: start: 20081016

REACTIONS (1)
  - Medical device complication [Recovered/Resolved]
